FAERS Safety Report 5400048-4 (Version None)
Quarter: 2007Q3

REPORT INFORMATION
  Report Type: 
  Country: None (occurrence: None)
  Receive Date: 20070726
  Receipt Date: 20070726
  Transmission Date: 20080115
  Serious: Yes (Other)
  Sender: FDA-Public Use
  Company Number: None

PATIENT
  Sex: Female

DRUGS (9)
  1. REVLIMID [Suspect]
     Indication: MULTIPLE MYELOMA
     Dosage: 25MG  DAILY 21D/28D  PO
     Route: 048
  2. GLIPIZIDE [Concomitant]
  3. VICODIN [Concomitant]
  4. FEXOFENADINE [Concomitant]
  5. FLUOXETINE [Concomitant]
  6. GABAPENTIN [Concomitant]
  7. ATENOLOL [Concomitant]
  8. LOVASTATIN [Concomitant]
  9. NOVOLIN R [Concomitant]

REACTIONS (6)
  - ASTHENIA [None]
  - BACK PAIN [None]
  - DRUG INTOLERANCE [None]
  - FATIGUE [None]
  - PANCYTOPENIA [None]
  - SOMNOLENCE [None]
